FAERS Safety Report 19090938 (Version 2)
Quarter: 2021Q2

REPORT INFORMATION
  Report Type: Spontaneous
  Country: JP (occurrence: JP)
  Receive Date: 20210405
  Receipt Date: 20210414
  Transmission Date: 20210717
  Serious: Yes (Life-Threatening, Other)
  Sender: FDA-Public Use
  Company Number: JP-ACCORD-221314

PATIENT
  Age: 5 Decade
  Sex: Female

DRUGS (14)
  1. URAPIDIL [Concomitant]
     Active Substance: URAPIDIL
  2. PALONOSETRON/PALONOSETRON HYDROCHLORIDE [Concomitant]
     Active Substance: PALONOSETRON HYDROCHLORIDE
     Indication: SUPPORTIVE CARE
     Dosage: ON DAY 1
  3. CALCIUM LEVOFOLINATE [Concomitant]
     Active Substance: LEVOLEUCOVORIN CALCIUM
     Indication: RECTAL CANCER STAGE IV
     Dosage: DAY 1, EVERY 2 WEEKS
  4. VONOPRAZAN [Concomitant]
     Active Substance: VONOPRAZAN
  5. TRAMADOL. [Concomitant]
     Active Substance: TRAMADOL
     Dosage: 200?300 MG ONCE A DAY
  6. APREPITANT. [Concomitant]
     Active Substance: APREPITANT
     Indication: SUPPORTIVE CARE
     Dosage: DAYS 2 AND 3
  7. APREPITANT. [Concomitant]
     Active Substance: APREPITANT
     Indication: SUPPORTIVE CARE
     Dosage: ON DAY 1
  8. DOMPERIDONE [Concomitant]
     Active Substance: DOMPERIDONE
     Indication: SUPPORTIVE CARE
     Dosage: FROM DAY 1 TO NAUSEA DISAPPEARANCE
  9. FLUOROURACIL. [Suspect]
     Active Substance: FLUOROURACIL
     Indication: RECTAL CANCER STAGE IV
     Dosage: DAY 1, EVERY 2 WEEKS CUM. 196 GRAM PER HR PER SQ. M
  10. PANITUMUMAB [Concomitant]
     Active Substance: PANITUMUMAB
     Indication: RECTAL CANCER STAGE IV
     Dosage: EVERY 2 WEEKS
  11. MIRABEGRON [Concomitant]
     Active Substance: MIRABEGRON
  12. MINOCYCLINE [Concomitant]
     Active Substance: MINOCYCLINE HYDROCHLORIDE
  13. DEXAMETHASONE. [Concomitant]
     Active Substance: DEXAMETHASONE
     Indication: SUPPORTIVE CARE
     Dosage: ON DAY 1, ORAL 8 MG ON DAY 2 3
  14. FLUOROURACIL. [Suspect]
     Active Substance: FLUOROURACIL
     Indication: RECTAL CANCER STAGE IV
     Dosage: DAY 1, EVERY 2 WEEKS

REACTIONS (1)
  - Hypertriglyceridaemia [Recovered/Resolved]
